FAERS Safety Report 19082752 (Version 1)
Quarter: 2021Q2

REPORT INFORMATION
  Report Type: Spontaneous
  Country: US (occurrence: US)
  Receive Date: 20210401
  Receipt Date: 20210401
  Transmission Date: 20210717
  Serious: Yes (Hospitalization)
  Sender: FDA-Public Use
  Company Number: US-HIKMA PHARMACEUTICALS USA INC.-US-H14001-21-01437

PATIENT
  Age: 19 Year
  Sex: Male

DRUGS (3)
  1. DACARBAZINE. [Suspect]
     Active Substance: DACARBAZINE
     Indication: MULTIPLE ENDOCRINE NEOPLASIA TYPE 2B
     Dosage: UNKNOWN
     Route: 065
  2. VINCRISTINE [Suspect]
     Active Substance: VINCRISTINE
     Indication: MULTIPLE ENDOCRINE NEOPLASIA TYPE 2B
     Dosage: UNKNOWN
     Route: 065
  3. CYCLOPHOSPHAMIDE. [Suspect]
     Active Substance: CYCLOPHOSPHAMIDE
     Indication: MULTIPLE ENDOCRINE NEOPLASIA TYPE 2B
     Dosage: UNKNOWN
     Route: 065

REACTIONS (2)
  - Respiratory failure [Unknown]
  - Pathological fracture [Unknown]
